FAERS Safety Report 5756371-7 (Version None)
Quarter: 2008Q2

REPORT INFORMATION
  Report Type: 
  Country: None (occurrence: None)
  Receive Date: 20080529
  Receipt Date: 20080516
  Transmission Date: 20081010
  Serious: Yes (Hospitalization)
  Sender: FDA-Public Use
  Company Number: M7001-02911-SPO-US

PATIENT
  Age: 78 Year
  Sex: Male
  Weight: 104 kg

DRUGS (6)
  1. TARGRETIN [Suspect]
     Indication: T-CELL LYMPHOMA
     Dosage: 525 MG, ORAL
     Route: 048
  2. ACCUPRIL [Concomitant]
  3. HYDROCHLOROTHIAZIDE [Concomitant]
  4. ZOCOR [Concomitant]
  5. TRICOR [Concomitant]
  6. OMEGA 3 (FISH OIL) [Concomitant]

REACTIONS (3)
  - CEREBROVASCULAR ACCIDENT [None]
  - DYSPNOEA [None]
  - TRANSIENT ISCHAEMIC ATTACK [None]
